FAERS Safety Report 21722748 (Version 1)
Quarter: 2022Q4

REPORT INFORMATION
  Report Type: Spontaneous
  Country: US (occurrence: None)
  Receive Date: 20221212
  Receipt Date: 20221212
  Transmission Date: 20230113
  Serious: Yes (Other)
  Sender: FDA-Public Use
  Company Number: None

PATIENT
  Age: 67 Year
  Sex: Male

DRUGS (1)
  1. BRIMONIDINE TARTRATE AND TIMOLOL MALEATE [Suspect]
     Active Substance: BRIMONIDINE TARTRATE\TIMOLOL MALEATE
     Dosage: FREQUENCY : TWICE A DAY;?
     Route: 047

REACTIONS (5)
  - Conjunctivitis allergic [None]
  - Conjunctival hyperaemia [None]
  - Conjunctival papillae [None]
  - Conjunctival oedema [None]
  - Product substitution issue [None]

NARRATIVE: CASE EVENT DATE: 20221208
